FAERS Safety Report 9067856 (Version 2)
Quarter: 2013Q1

REPORT INFORMATION
  Report Type: Spontaneous
  Country: US (occurrence: US)
  Receive Date: 20130215
  Receipt Date: 20130222
  Transmission Date: 20140127
  Serious: Yes (Hospitalization)
  Sender: FDA-Public Use
  Company Number: US-BIOGENIDEC-2013BI013359

PATIENT
  Sex: Female

DRUGS (2)
  1. TYSABRI [Suspect]
     Indication: MULTIPLE SCLEROSIS
     Route: 042
     Dates: start: 20090623
  2. FLAX OIL [Concomitant]

REACTIONS (10)
  - Pyrexia [Not Recovered/Not Resolved]
  - Dysstasia [Not Recovered/Not Resolved]
  - Musculoskeletal disorder [Not Recovered/Not Resolved]
  - Nephrolithiasis [Recovered/Resolved]
  - Dysuria [Recovered/Resolved]
  - Asthenia [Not Recovered/Not Resolved]
  - Muscle spasms [Not Recovered/Not Resolved]
  - Hemiparesis [Recovered/Resolved]
  - Pain [Not Recovered/Not Resolved]
  - Malaise [Unknown]
